FAERS Safety Report 7403971-4 (Version None)
Quarter: 2011Q2

REPORT INFORMATION
  Report Type: 
  Country: None (occurrence: None)
  Receive Date: 20110408
  Receipt Date: 20110328
  Transmission Date: 20111010
  Serious: Yes (Hospitalization, Other)
  Sender: FDA-Public Use
  Company Number: DE-BRISTOL-MYERS SQUIBB COMPANY-15649502

PATIENT
  Age: 57 Year

DRUGS (6)
  1. MACROGOL [Concomitant]
     Dosage: MACROGOL 4000 1 DF:36 DOSAGEG FORMS
  2. NORVASC [Concomitant]
     Dosage: 1 DF:5 UNIT NOS
  3. TAVANIC [Concomitant]
     Dosage: 1 DF:500 UNIT NOS
  4. HYDROCORTISONE [Concomitant]
     Indication: HORMONE REPLACEMENT THERAPY
     Dosage: 10MG 1 FD:5 DOSAGE FORMS (3-2-0)
  5. LORAZEPAM [Concomitant]
     Dosage: 2 DOSAGE FORMS
  6. LYSODREN [Suspect]
     Indication: ADRENOCORTICAL CARCINOMA
     Dosage: 1 DF:12 DOSAGE FORM(4 DOSAGE FORMS,4-4-4) 6 GRAM
     Route: 048
     Dates: start: 20110129, end: 20110315

REACTIONS (6)
  - HYPERTENSION [None]
  - FEBRILE NEUTROPENIA [None]
  - DIARRHOEA [None]
  - ASTHENIA [None]
  - OROPHARYNGEAL PAIN [None]
  - PYREXIA [None]
